FAERS Safety Report 5771688-8 (Version None)
Quarter: 2008Q2

REPORT INFORMATION
  Report Type: 
  Country: None (occurrence: None)
  Receive Date: 20080613
  Receipt Date: 20080610
  Transmission Date: 20081010
  Serious: Yes (Other)
  Sender: FDA-Public Use
  Company Number: US-BAYER-200824625NA

PATIENT
  Age: 62 Year
  Sex: Male

DRUGS (1)
  1. LEVITRA [Suspect]
     Indication: DRUG USE FOR UNKNOWN INDICATION
     Dosage: TOTAL DAILY DOSE: 10 MG  UNIT DOSE: 10 MG
     Route: 048
     Dates: start: 20080530

REACTIONS (1)
  - URETHRAL HAEMORRHAGE [None]
